FAERS Safety Report 7497578-0 (Version None)
Quarter: 2011Q2

REPORT INFORMATION
  Report Type: 
  Country: None (occurrence: None)
  Receive Date: 20110523
  Receipt Date: 20110512
  Transmission Date: 20111010
  Serious: Yes (Life-Threatening, Hospitalization, Other)
  Sender: FDA-Public Use
  Company Number: FR-PFIZER INC-2008050188

PATIENT
  Age: 23 Year
  Sex: Female

DRUGS (3)
  1. MIFEPRISTONE (MIFEPREX) [Concomitant]
     Dosage: UNK
     Dates: start: 20080430
  2. IBUPROFEN [Suspect]
     Indication: ABORTION INDUCED
     Dosage: 2 TABLETS OF 200MG AT 8.00AM
     Route: 048
     Dates: start: 20080502, end: 20080502
  3. CYTOTEC [Suspect]
     Indication: ABORTION INDUCED
     Dosage: 2 DF IN ONE INTAKE BETWEEN 8.45 AND 9.00AM
     Route: 060
     Dates: start: 20080502, end: 20080502

REACTIONS (2)
  - ANAPHYLACTIC SHOCK [None]
  - OFF LABEL USE [None]
